FAERS Safety Report 11558235 (Version 1)
Quarter: 2015Q3

REPORT INFORMATION
  Report Type: Spontaneous
  Country: PA (occurrence: PA)
  Receive Date: 20150928
  Receipt Date: 20150928
  Transmission Date: 20151125
  Serious: Yes (Other)
  Sender: FDA-Public Use
  Company Number: PA-PFIZER INC-2015312131

PATIENT
  Age: 70 Year
  Sex: Male

DRUGS (2)
  1. VIAGRA [Suspect]
     Active Substance: SILDENAFIL CITRATE
     Dosage: 50 MG, UNK
  2. TETRAHYDROCANNABINOL [Interacting]
     Active Substance: DRONABINOL
     Dosage: UNK

REACTIONS (2)
  - Drug interaction [Unknown]
  - Syncope [Unknown]
